FAERS Safety Report 25347195 (Version 1)
Quarter: 2025Q2

REPORT INFORMATION
  Report Type: Spontaneous
  Country: US (occurrence: US)
  Receive Date: 20250522
  Receipt Date: 20250522
  Transmission Date: 20250717
  Serious: No
  Sender: ROCHE
  Company Number: US-ROCHE-10000285687

PATIENT
  Sex: Male

DRUGS (2)
  1. XOLAIR [Suspect]
     Active Substance: OMALIZUMAB
     Indication: Asthma
     Dosage: FORM STRENGTH: 300 MG/ 2 ML
     Route: 058
     Dates: start: 201810
  2. BIMZELX [Concomitant]
     Active Substance: BIMEKIZUMAB-BKZX
     Dosage: INJECT 1 PEN UNDER THE SKIN ONCE EVERY 4 WEEKS FOR 16 WEEKS (WEEKS 0, 4, 8, 12, AND 16) THEN 1 PEN E
     Route: 058

REACTIONS (4)
  - Asthenia [Unknown]
  - Irritability [Unknown]
  - Nasal congestion [Unknown]
  - Fatigue [Unknown]
